FAERS Safety Report 10971260 (Version 3)
Quarter: 2015Q2

REPORT INFORMATION
  Report Type: Spontaneous
  Country: BR (occurrence: BR)
  Receive Date: 20150331
  Receipt Date: 20150526
  Transmission Date: 20150821
  Serious: Yes (Other)
  Sender: FDA-Public Use
  Company Number: BR-AMGEN-BRASP2015028856

PATIENT
  Age: 35 Year
  Sex: Female
  Weight: 83 kg

DRUGS (3)
  1. ENBREL [Suspect]
     Active Substance: ETANERCEPT
     Indication: RHEUMATOID ARTHRITIS
     Dosage: 50 MG, 1X/WEEK
     Route: 058
     Dates: start: 201103
  2. METHOTREXATE [Concomitant]
     Active Substance: METHOTREXATE
     Dosage: UNK, WEEKLY
     Dates: start: 201103
  3. DEFLAZACORT [Concomitant]
     Active Substance: DEFLAZACORT
     Indication: ARTHRALGIA
     Dosage: 100 MG, AS NEEDED

REACTIONS (12)
  - Rash [Recovered/Resolved]
  - Back pain [Unknown]
  - Hypertension [Recovered/Resolved]
  - Injection site erythema [Recovered/Resolved]
  - Chikungunya virus infection [Recovered/Resolved]
  - Dengue fever [Recovered/Resolved]
  - Pyrexia [Unknown]
  - Pruritus generalised [Recovered/Resolved]
  - Spinal pain [Unknown]
  - Headache [Unknown]
  - Joint swelling [Unknown]
  - Arthropathy [Unknown]

NARRATIVE: CASE EVENT DATE: 201501
